FAERS Safety Report 6061734-9 (Version None)
Quarter: 2009Q1

REPORT INFORMATION
  Report Type: 
  Country: None (occurrence: None)
  Receive Date: 20090202
  Receipt Date: 20090128
  Transmission Date: 20090719
  Serious: Yes (Hospitalization)
  Sender: FDA-Public Use
  Company Number: FR-BRISTOL-MYERS SQUIBB COMPANY-14487219

PATIENT
  Age: 84 Year
  Sex: Female

DRUGS (3)
  1. COAPROVEL FILM-COATED TABS 300/12.5 MG [Suspect]
     Indication: HYPERTENSION
     Dosage: 1 DOSAGE FORM = 300MG/12.5MG,1 TABLET
     Route: 048
     Dates: start: 20060101, end: 20081230
  2. AMLOD [Concomitant]
     Indication: HYPERTENSION
     Dosage: 2 CAPSULES DAILY (5 MG). INCREASED TO 10MG.
     Dates: start: 20070101
  3. IMODIUM [Concomitant]
     Route: 048
     Dates: start: 20060101

REACTIONS (4)
  - CONFUSIONAL STATE [None]
  - DEHYDRATION [None]
  - FALL [None]
  - RENAL FAILURE ACUTE [None]
